FAERS Safety Report 8334092-4 (Version None)
Quarter: 2012Q2

REPORT INFORMATION
  Report Type: 
  Country: None (occurrence: None)
  Receive Date: 20120503
  Receipt Date: 20120418
  Transmission Date: 20120825
  Serious: Yes (Death, Life-Threatening, Other)
  Sender: FDA-Public Use
  Company Number: JP-ROCHE-1044502

PATIENT
  Sex: Female
  Weight: 43 kg

DRUGS (11)
  1. CRESTOR [Concomitant]
     Dosage: DOSAGE IS UNCERTAIN.
     Route: 048
  2. TAMIFLU [Suspect]
     Indication: PRODUCT USED FOR UNKNOWN INDICATION
     Route: 048
     Dates: start: 20120222, end: 20120222
  3. NORVASC [Concomitant]
     Route: 048
  4. ALDACTONE [Concomitant]
     Route: 048
  5. RENAGEL [Concomitant]
     Route: 048
  6. LASIX [Concomitant]
     Route: 048
  7. OMEPRAZOLE [Concomitant]
     Route: 048
  8. GASMOTIN [Concomitant]
     Route: 048
  9. ADALAT CC [Concomitant]
     Route: 048
  10. METOPROLOL TARTRATE [Concomitant]
     Route: 048
  11. OLOPATADINE HCL [Concomitant]
     Route: 048

REACTIONS (28)
  - ACUTE MYOCARDIAL INFARCTION [None]
  - DEMYELINATION [None]
  - PLEURAL EFFUSION [None]
  - LACTIC ACIDOSIS [None]
  - PULMONARY CONGESTION [None]
  - STRESS CARDIOMYOPATHY [None]
  - VASCULITIS [None]
  - ALTERED STATE OF CONSCIOUSNESS [None]
  - CONVULSION [None]
  - SYSTEMIC INFLAMMATORY RESPONSE SYNDROME [None]
  - HISTIOCYTOSIS HAEMATOPHAGIC [None]
  - CEREBRAL INFARCTION [None]
  - LARGE INTESTINAL ULCER [None]
  - UTERINE LEIOMYOMA [None]
  - AORTIC CALCIFICATION [None]
  - THROMBOTIC THROMBOCYTOPENIC PURPURA [None]
  - PULMONARY HAEMORRHAGE [None]
  - PANCREATITIS [None]
  - PNEUMONIA [None]
  - DISSEMINATED INTRAVASCULAR COAGULATION [None]
  - PERIPHERAL CIRCULATORY FAILURE [None]
  - HEPATIC FUNCTION ABNORMAL [None]
  - PYREXIA [None]
  - HYPOXIA [None]
  - RESPIRATORY ARREST [None]
  - ACUTE CORONARY SYNDROME [None]
  - BRAIN ABSCESS [None]
  - ASCITES [None]
